FAERS Safety Report 6749695 (Version 2)
Quarter: 2013Q1

REPORT INFORMATION
  Report Type: Report from Study
  Country: US (occurrence: US)
  Receive Date: 20080905
  Receipt Date: 20130304
  Transmission Date: 20140127
  Serious: Yes (Other)
  Sender: FDA-Public Use
  Company Number: US-PFIZER INC-2008071527

PATIENT
  Age: 34 Year
  Sex: Female
  Weight: 122 kg

DRUGS (6)
  1. LYRICA [Suspect]
     Indication: FIBROMYALGIA
     Dosage: 300 MG, UNK
     Route: 048
  2. LYRICA [Suspect]
     Dosage: UNK
     Route: 048
  3. LYRICA [Suspect]
     Dosage: 150 MG, 3X/DAY
     Route: 048
     Dates: end: 2008
  4. NORTRIPTYLINE [Suspect]
  5. NUCYNTA ER [Concomitant]
     Indication: PAIN
     Dosage: 200 MG, 2X/DAY
  6. SAVELLA [Concomitant]
     Indication: PAIN
     Dosage: 100 MG, 2X/DAY

REACTIONS (7)
  - Fall [Unknown]
  - Dizziness [Unknown]
  - Weight increased [Unknown]
  - Drug dependence [Unknown]
  - Drug ineffective [Unknown]
  - Nausea [Unknown]
  - Amnesia [Unknown]
